FAERS Safety Report 7548168-2 (Version None)
Quarter: 2011Q2

REPORT INFORMATION
  Report Type: 
  Country: None (occurrence: None)
  Receive Date: 20110615
  Receipt Date: 20110601
  Transmission Date: 20111010
  Serious: Yes (Hospitalization)
  Sender: FDA-Public Use
  Company Number: SE-MYLANLABS-2011S1011236

PATIENT
  Age: 82 Year
  Sex: Female

DRUGS (14)
  1. HERACILLIN [Concomitant]
     Indication: PRODUCT USED FOR UNKNOWN INDICATION
  2. SOBRIL [Concomitant]
     Indication: PRODUCT USED FOR UNKNOWN INDICATION
  3. OXIS TURBOHALER [Concomitant]
     Indication: ASTHMA
     Route: 055
  4. PREDNISOLONE [Concomitant]
     Indication: MULTIPLE SCLEROSIS
  5. ACETYLCYSTEINE [Concomitant]
     Indication: PRODUCT USED FOR UNKNOWN INDICATION
  6. SIMVASTATIN [Concomitant]
     Indication: PRODUCT USED FOR UNKNOWN INDICATION
  7. IMOVAN [Concomitant]
     Indication: PRODUCT USED FOR UNKNOWN INDICATION
  8. LEVOTHYROXINE SODIUM [Concomitant]
     Indication: PRODUCT USED FOR UNKNOWN INDICATION
  9. BACLOFEN [Suspect]
     Route: 048
  10. BACLOFEN [Suspect]
     Indication: MULTIPLE SCLEROSIS
     Route: 048
  11. BACLOFEN [Suspect]
     Dates: start: 20110201
  12. AMILORIDE HCL AND HYDROCHLOROTHIAZIDE [Concomitant]
     Indication: PRODUCT USED FOR UNKNOWN INDICATION
  13. SYMBICORT [Concomitant]
     Indication: ASTHMA
     Route: 055
  14. TREO [Concomitant]
     Indication: PRODUCT USED FOR UNKNOWN INDICATION

REACTIONS (6)
  - RENAL FAILURE ACUTE [None]
  - URINARY RETENTION [None]
  - SOMNOLENCE [None]
  - CONFUSIONAL STATE [None]
  - THROMBOSIS [None]
  - MUSCLE SPASTICITY [None]
